FAERS Safety Report 7305831-6 (Version None)
Quarter: 2011Q1

REPORT INFORMATION
  Report Type: 
  Country: None (occurrence: None)
  Receive Date: 20110222
  Receipt Date: 20110216
  Transmission Date: 20110831
  Serious: Yes (Other)
  Sender: FDA-Public Use
  Company Number: US-PFIZER INC-2009246761

PATIENT
  Sex: Male

DRUGS (1)
  1. FLAGYL [Suspect]
     Indication: AMOEBIASIS
     Dosage: UNK
     Route: 048

REACTIONS (9)
  - ORAL DISCOMFORT [None]
  - GASTROINTESTINAL CANDIDIASIS [None]
  - ORAL CANDIDIASIS [None]
  - WEIGHT DECREASED [None]
  - GASTROINTESTINAL DISORDER [None]
  - ORAL FUNGAL INFECTION [None]
  - BURNING SENSATION [None]
  - GASTRITIS [None]
  - WRONG TECHNIQUE IN DRUG USAGE PROCESS [None]
